FAERS Safety Report 5712666-4 (Version None)
Quarter: 2008Q2

REPORT INFORMATION
  Report Type: 
  Country: None (occurrence: None)
  Receive Date: 20080422
  Receipt Date: 20080415
  Transmission Date: 20081010
  Serious: Yes (Other)
  Sender: FDA-Public Use
  Company Number: B0515742A

PATIENT
  Age: 42 Year
  Sex: Female

DRUGS (1)
  1. NICOTINE POLACRILEX [Suspect]
     Route: 048
     Dates: start: 20080321, end: 20080404

REACTIONS (11)
  - ABDOMINAL PAIN UPPER [None]
  - CONTUSION [None]
  - DISABILITY [None]
  - DIZZINESS [None]
  - FEELING HOT [None]
  - FLATULENCE [None]
  - IMPAIRED DRIVING ABILITY [None]
  - NAUSEA [None]
  - PHARMACEUTICAL PRODUCT COMPLAINT [None]
  - RASH PRURITIC [None]
  - SYNCOPE [None]
